FAERS Safety Report 9548795 (Version 1)
Quarter: 2013Q3

REPORT INFORMATION
  Report Type: Spontaneous
  Country: GB (occurrence: None)
  Receive Date: 20130919
  Receipt Date: 20130919
  Transmission Date: 20140515
  Serious: Yes (Life-Threatening, Hospitalization, Other)
  Sender: FDA-Public Use
  Company Number: SYM-2013-10838

PATIENT
  Sex: Female

DRUGS (12)
  1. METRONIDAZOLE (METRONIDAZOLE) (METRONIDAZOLE) [Suspect]
     Indication: CLOSTRIDIUM DIFFICILE INFECTION
     Dosage: 400 MG, 3, ORAL
     Route: 048
     Dates: start: 20120415, end: 20120425
  2. CO-AMOXICLAV [Suspect]
     Indication: PRODUCT USED FOR UNKNOWN INDICATION
     Route: 048
     Dates: start: 20120320, end: 20120327
  3. FOSFOMYCIN [Suspect]
     Indication: URINARY TRACT INFECTION
     Route: 048
     Dates: start: 20120419
  4. TRIMETHOPRIM (TRIMETHOPRIM) [Suspect]
     Indication: PRODUCT USED FOR UNKNOWN INDICATION
     Route: 048
     Dates: start: 20120515, end: 20120517
  5. WARFARIN (WARFARIN) (WARFARIN) [Concomitant]
  6. CALCICHEW D3 (LEKOVIT CA) (COLECALCIFEROL, CALCIUM CARBONATE) [Concomitant]
  7. DULOXETINE HYDROCHLORIDE (DULOXETINE HYDROCHLORIDE) (DULOXETINE HYDROCHLORIDE) [Concomitant]
  8. ZOPICOLNE (ZOPICLONE) (ZOPICLONE) [Concomitant]
  9. BETAHISTINE (BETAHISTINE) (BETAHISTINE) [Concomitant]
  10. SERETIDE (SERETIDE) (FLUTICASONE PROPIONATE, SALMETEROL XINAFOATE) [Concomitant]
  11. SIMVASTATIN (SIMVASTATIN) (SIMVASTATIN) [Concomitant]
  12. HYDROXOCOBALAMIN (HYDROXOCOBALAMIN) (HYDROXOCOBALAMIN) [Concomitant]

REACTIONS (1)
  - International normalised ratio increased [None]
